FAERS Safety Report 9631066 (Version 1)
Quarter: 2013Q4

REPORT INFORMATION
  Report Type: Spontaneous
  Country: JP (occurrence: JP)
  Receive Date: 20131018
  Receipt Date: 20131018
  Transmission Date: 20140711
  Serious: Yes (Other)
  Sender: FDA-Public Use
  Company Number: JP-PFIZER INC-2013296629

PATIENT
  Age: 33 Year
  Sex: Female

DRUGS (4)
  1. CARBOPLATIN [Suspect]
     Indication: ENDOMETRIAL ADENOCARCINOMA
     Dosage: 150 MG/M2, UNK
     Dates: end: 1999
  2. CARBOPLATIN [Suspect]
     Indication: CHEMOTHERAPY
  3. CYCLOPHOSPHAMIDE [Suspect]
     Indication: ENDOMETRIAL ADENOCARCINOMA
     Dosage: 150 MG/M2, UNK
     Dates: end: 1999
  4. CYCLOPHOSPHAMIDE [Suspect]
     Indication: RADIOTHERAPY

REACTIONS (1)
  - Renal failure chronic [Unknown]
